FAERS Safety Report 10086044 (Version 3)
Quarter: 2014Q4

REPORT INFORMATION
  Report Type: Report from Study
  Country: DE (occurrence: DE)
  Receive Date: 20140418
  Receipt Date: 20141007
  Transmission Date: 20150528
  Serious: Yes (Hospitalization)
  Sender: FDA-Public Use
  Company Number: DE-JNJFOC-20131010247

PATIENT
  Age: 35 Year
  Sex: Male
  Weight: 71 kg

DRUGS (7)
  1. BUDESONIDE. [Concomitant]
     Active Substance: BUDESONIDE
     Indication: NASAL POLYPS
     Route: 045
  2. REMICADE [Suspect]
     Active Substance: INFLIXIMAB
     Indication: CROHN^S DISEASE
     Route: 042
     Dates: start: 20130408
  3. AZATHIOPRINE. [Concomitant]
     Active Substance: AZATHIOPRINE
     Indication: CROHN^S DISEASE
     Route: 065
     Dates: start: 20121107
  4. PANTOPRAZOLE [Concomitant]
     Active Substance: PANTOPRAZOLE SODIUM
     Indication: PROPHYLAXIS
     Route: 065
     Dates: start: 20121018
  5. REMICADE [Suspect]
     Active Substance: INFLIXIMAB
     Indication: CROHN^S DISEASE
     Route: 042
     Dates: start: 20130904
  6. REMICADE [Suspect]
     Active Substance: INFLIXIMAB
     Indication: CROHN^S DISEASE
     Route: 042
     Dates: start: 20131111
  7. ASPIRIN. [Suspect]
     Active Substance: ASPIRIN
     Indication: PRODUCT USED FOR UNKNOWN INDICATION
     Route: 065
     Dates: start: 20100705

REACTIONS (10)
  - Coronary artery disease [Not Recovered/Not Resolved]
  - Viral infection [Unknown]
  - Bronchitis [Recovered/Resolved]
  - Asthma [Recovered/Resolved]
  - Anal abscess [Recovered/Resolved]
  - Acne [Unknown]
  - Upper respiratory tract infection [Recovered/Resolved]
  - Lymphadenopathy [Recovered/Resolved]
  - Asthma [Recovered/Resolved]
  - Silicosis [Unknown]

NARRATIVE: CASE EVENT DATE: 20130806
